FAERS Safety Report 7285476-7 (Version None)
Quarter: 2011Q1

REPORT INFORMATION
  Report Type: 
  Country: None (occurrence: None)
  Receive Date: 20110210
  Receipt Date: 20110130
  Transmission Date: 20110831
  Serious: Yes (Hospitalization)
  Sender: FDA-Public Use
  Company Number: TW-NOVOPROD-320438

PATIENT
  Age: 6 Year
  Sex: Female
  Weight: 26 kg

DRUGS (2)
  1. INSULIN INSULATARD NPH NORDISK [Suspect]
     Indication: TYPE 1 DIABETES MELLITUS
     Dosage: 18 U, QD
     Route: 058
     Dates: start: 20061001
  2. NOVORAPID PENFILL [Suspect]
     Indication: TYPE 1 DIABETES MELLITUS
     Dosage: 12 U, QD
     Route: 058
     Dates: start: 20061001

REACTIONS (1)
  - PRECURSOR B-LYMPHOBLASTIC LYMPHOMA [None]
